FAERS Safety Report 13973066 (Version 1)
Quarter: 2017Q3

REPORT INFORMATION
  Report Type: Spontaneous
  Country: JP (occurrence: JP)
  Receive Date: 20170914
  Receipt Date: 20170914
  Transmission Date: 20171128
  Serious: Yes (Other)
  Sender: FDA-Public Use
  Company Number: JP-AMGEN-JPNSP2017140006

PATIENT
  Age: 3 Decade
  Sex: Female

DRUGS (1)
  1. GRAN [Suspect]
     Active Substance: FILGRASTIM
     Indication: PRODUCT USED FOR UNKNOWN INDICATION
     Dosage: 300 MUG, UNK
     Route: 058

REACTIONS (4)
  - Hypoxia [Recovered/Resolved]
  - Genital haemorrhage [Unknown]
  - Anaphylactoid reaction [Recovered/Resolved]
  - White blood cell count increased [Recovering/Resolving]
